FAERS Safety Report 8554652 (Version 2)
Quarter: 2012Q4

REPORT INFORMATION
  Report Type: 
  Country: CA (occurrence: CA)
  Receive Date: 20120509
  Receipt Date: 20121001
  Transmission Date: 20130627
  Serious: Yes (Death, Hospitalization)
  Sender: FDA-Public Use
  Company Number: CA-MPIJNJ-2012-03230

PATIENT

DRUGS (1)
  1. VELCADE [Suspect]
     Indication: PRODUCT USED FOR UNKNOWN INDICATION
     Dosage: 1.3 mg/m2, UNK
     Route: 065
     Dates: start: 20100311, end: 20120321

REACTIONS (3)
  - Arrhythmia [Fatal]
  - Abdominal pain [Unknown]
  - Dysaesthesia [Unknown]
